FAERS Safety Report 8555557-6 (Version None)
Quarter: 2012Q3

REPORT INFORMATION
  Report Type: 
  Country: None (occurrence: None)
  Receive Date: 20120731
  Receipt Date: 20110824
  Transmission Date: 20120928
  Serious: No
  Sender: FDA-Public Use
  Company Number: US-ASTRAZENECA-2010SE59109

PATIENT
  Age: 44 Year
  Sex: Female

DRUGS (7)
  1. SEROQUEL [Suspect]
     Route: 048
  2. SEROQUEL [Suspect]
     Dosage: 300 MG IN AM AND 300 MG PM
     Route: 048
     Dates: start: 20101129
  3. SEROQUEL [Suspect]
     Dosage: 300 MG IN AM AND 300 MG PM
     Route: 048
     Dates: start: 20101129
  4. PRISTIQ [Concomitant]
  5. SEROQUEL [Suspect]
     Route: 048
  6. SEROQUEL [Suspect]
     Indication: SLEEP DISORDER
     Route: 048
  7. SEROQUEL [Suspect]
     Indication: PSYCHOTIC DISORDER
     Route: 048

REACTIONS (13)
  - SUBSTANCE ABUSE [None]
  - ANXIETY [None]
  - BLOOD PRESSURE INCREASED [None]
  - INSOMNIA [None]
  - BACK INJURY [None]
  - HEADACHE [None]
  - NEPHROLITHIASIS [None]
  - DEPRESSION [None]
  - CHEST PAIN [None]
  - PANIC DISORDER [None]
  - WHEEZING [None]
  - NASOPHARYNGITIS [None]
  - DRUG INEFFECTIVE [None]
